FAERS Safety Report 16983075 (Version 1)
Quarter: 2019Q4

REPORT INFORMATION
  Report Type: Spontaneous
  Country: CA (occurrence: CA)
  Receive Date: 20191101
  Receipt Date: 20191101
  Transmission Date: 20200122
  Serious: Yes (Life-Threatening)
  Sender: FDA-Public Use
  Company Number: CA-TEVA-2019-CA-1129099

PATIENT
  Age: 45 Year
  Sex: Female

DRUGS (85)
  1. MYCOPHENOLATE MOFETIL. [Suspect]
     Active Substance: MYCOPHENOLATE MOFETIL
     Route: 048
  2. MYCOPHENOLATE MOFETIL. [Suspect]
     Active Substance: MYCOPHENOLATE MOFETIL
     Route: 065
  3. ANTI-THYMOCYTE GLOBULIN (RABBIT) NOS [Suspect]
     Active Substance: LAPINE T-LYMPHOCYTE IMMUNE GLOBULIN
     Route: 065
  4. ANTI-THYMOCYTE GLOBULIN (RABBIT) NOS [Suspect]
     Active Substance: LAPINE T-LYMPHOCYTE IMMUNE GLOBULIN
     Route: 065
  5. ANTI HUMAN LYMPHOCYTE GLOBULIN EQUINE [Suspect]
     Active Substance: EQUINE THYMOCYTE IMMUNE GLOBULIN
     Indication: PRODUCT USED FOR UNKNOWN INDICATION
     Route: 065
  6. ANTITHYMOCYTE IMMUNOGLOBULIN [Suspect]
     Active Substance: THYMOCYTE IMMUNE GLOBULIN NOS
     Indication: TRANSPLANT
     Route: 065
  7. ENBREL [Suspect]
     Active Substance: ETANERCEPT
     Route: 058
  8. ENBREL [Suspect]
     Active Substance: ETANERCEPT
     Route: 058
  9. PROGRAF [Suspect]
     Active Substance: TACROLIMUS
     Dosage: 5 MILLIGRAM DAILY;
     Route: 048
  10. PROGRAF [Suspect]
     Active Substance: TACROLIMUS
     Route: 048
  11. ANTI-THYMOCYTE GLOBULIN (RABBIT) NOS [Suspect]
     Active Substance: LAPINE T-LYMPHOCYTE IMMUNE GLOBULIN
     Indication: PRODUCT USED FOR UNKNOWN INDICATION
     Route: 065
  12. ANTITHYMOCYTE IMMUNOGLOBULIN [Suspect]
     Active Substance: THYMOCYTE IMMUNE GLOBULIN NOS
     Route: 065
  13. DACLIZUMAB [Suspect]
     Active Substance: DACLIZUMAB
     Indication: TRANSPLANT
     Route: 042
  14. DACLIZUMAB [Suspect]
     Active Substance: DACLIZUMAB
     Route: 042
  15. ENBREL [Suspect]
     Active Substance: ETANERCEPT
     Dosage: 50 MILLIGRAM DAILY;
     Route: 058
  16. PROGRAF [Suspect]
     Active Substance: TACROLIMUS
     Route: 048
  17. PROGRAF [Suspect]
     Active Substance: TACROLIMUS
     Route: 048
  18. PROGRAF [Suspect]
     Active Substance: TACROLIMUS
     Dosage: 4 MILLIGRAM DAILY;
     Route: 048
  19. TACROLIMUS. [Suspect]
     Active Substance: TACROLIMUS
     Indication: PRODUCT USED FOR UNKNOWN INDICATION
     Route: 048
  20. TACROLIMUS. [Suspect]
     Active Substance: TACROLIMUS
     Route: 048
  21. TACROLIMUS. [Suspect]
     Active Substance: TACROLIMUS
     Route: 065
  22. MYCOPHENOLATE MOFETIL. [Suspect]
     Active Substance: MYCOPHENOLATE MOFETIL
     Route: 048
  23. MYCOPHENOLATE MOFETIL. [Suspect]
     Active Substance: MYCOPHENOLATE MOFETIL
     Route: 065
  24. ANTITHYMOCYTE IMMUNOGLOBULIN [Suspect]
     Active Substance: THYMOCYTE IMMUNE GLOBULIN NOS
     Route: 065
  25. DACLIZUMAB [Suspect]
     Active Substance: DACLIZUMAB
     Indication: PRODUCT USED FOR UNKNOWN INDICATION
     Route: 042
  26. DACLIZUMAB [Suspect]
     Active Substance: DACLIZUMAB
     Route: 042
  27. ENBREL [Suspect]
     Active Substance: ETANERCEPT
     Dosage: 100 MILLIGRAM DAILY;
     Route: 048
  28. ENBREL [Suspect]
     Active Substance: ETANERCEPT
     Route: 048
  29. NEORAL [Suspect]
     Active Substance: CYCLOSPORINE
     Indication: TRANSPLANT
     Route: 065
  30. PROGRAF [Suspect]
     Active Substance: TACROLIMUS
     Route: 048
  31. PROGRAF [Suspect]
     Active Substance: TACROLIMUS
     Route: 048
  32. PROGRAF [Suspect]
     Active Substance: TACROLIMUS
     Route: 048
  33. PROGRAF [Suspect]
     Active Substance: TACROLIMUS
     Dosage: 5 MILLIGRAM DAILY;
     Route: 048
  34. REMICADE [Suspect]
     Active Substance: INFLIXIMAB
     Route: 042
  35. TACROLIMUS. [Suspect]
     Active Substance: TACROLIMUS
     Route: 048
  36. MYCOPHENOLATE MOFETIL. [Suspect]
     Active Substance: MYCOPHENOLATE MOFETIL
     Dosage: 2000 MILLIGRAM DAILY;
     Route: 048
  37. ANTITHYMOCYTE IMMUNOGLOBULIN [Suspect]
     Active Substance: THYMOCYTE IMMUNE GLOBULIN NOS
     Route: 065
  38. ENBREL [Suspect]
     Active Substance: ETANERCEPT
     Dosage: 50 MILLIGRAM DAILY;
     Route: 058
  39. ENBREL [Suspect]
     Active Substance: ETANERCEPT
     Route: 058
  40. ENBREL [Suspect]
     Active Substance: ETANERCEPT
     Route: 058
  41. PROGRAF [Suspect]
     Active Substance: TACROLIMUS
     Route: 048
  42. PROGRAF [Suspect]
     Active Substance: TACROLIMUS
     Route: 048
  43. TACROLIMUS. [Suspect]
     Active Substance: TACROLIMUS
     Route: 048
  44. MYCOPHENOLATE MOFETIL. [Suspect]
     Active Substance: MYCOPHENOLATE MOFETIL
     Indication: TRANSPLANT
     Route: 048
  45. MYCOPHENOLATE MOFETIL. [Suspect]
     Active Substance: MYCOPHENOLATE MOFETIL
     Route: 048
  46. MYCOPHENOLATE MOFETIL. [Suspect]
     Active Substance: MYCOPHENOLATE MOFETIL
     Route: 048
  47. ANTI-THYMOCYTE GLOBULIN (RABBIT) NOS [Suspect]
     Active Substance: LAPINE T-LYMPHOCYTE IMMUNE GLOBULIN
     Route: 065
  48. ENBREL [Suspect]
     Active Substance: ETANERCEPT
     Route: 065
  49. PROGRAF [Suspect]
     Active Substance: TACROLIMUS
     Route: 048
  50. PROGRAF [Suspect]
     Active Substance: TACROLIMUS
     Route: 048
  51. PROGRAF [Suspect]
     Active Substance: TACROLIMUS
     Dosage: 6 MILLIGRAM DAILY;
     Route: 048
  52. PROGRAF [Suspect]
     Active Substance: TACROLIMUS
     Route: 048
  53. REMICADE [Suspect]
     Active Substance: INFLIXIMAB
     Indication: PRODUCT USED FOR UNKNOWN INDICATION
     Route: 065
  54. MYCOPHENOLATE MOFETIL. [Suspect]
     Active Substance: MYCOPHENOLATE MOFETIL
     Route: 065
  55. ANTITHYMOCYTE IMMUNOGLOBULIN [Suspect]
     Active Substance: THYMOCYTE IMMUNE GLOBULIN NOS
     Route: 065
  56. ENBREL [Suspect]
     Active Substance: ETANERCEPT
     Indication: PRODUCT USED FOR UNKNOWN INDICATION
     Route: 058
  57. ENBREL [Suspect]
     Active Substance: ETANERCEPT
     Route: 058
  58. PROGRAF [Suspect]
     Active Substance: TACROLIMUS
     Dosage: 2 MILLIGRAM DAILY;
     Route: 048
  59. PROGRAF [Suspect]
     Active Substance: TACROLIMUS
     Route: 048
  60. PROGRAF [Suspect]
     Active Substance: TACROLIMUS
     Dosage: 6 MILLICURIES DAILY;
     Route: 048
  61. PROGRAF [Suspect]
     Active Substance: TACROLIMUS
     Route: 065
  62. PROGRAF [Suspect]
     Active Substance: TACROLIMUS
     Route: 048
  63. SULFASALAZINE. [Suspect]
     Active Substance: SULFASALAZINE
     Indication: RHEUMATOID ARTHRITIS
     Route: 065
  64. MYCOPHENOLATE MOFETIL. [Suspect]
     Active Substance: MYCOPHENOLATE MOFETIL
     Route: 065
  65. MYCOPHENOLATE MOFETIL. [Suspect]
     Active Substance: MYCOPHENOLATE MOFETIL
     Route: 065
  66. ANTITHYMOCYTE IMMUNOGLOBULIN(HORSE) [Suspect]
     Active Substance: EQUINE THYMOCYTE IMMUNE GLOBULIN
     Indication: TRANSPLANT
     Route: 065
  67. ENBREL [Suspect]
     Active Substance: ETANERCEPT
     Route: 058
  68. ENBREL [Suspect]
     Active Substance: ETANERCEPT
     Route: 058
  69. ENBREL [Suspect]
     Active Substance: ETANERCEPT
     Route: 065
  70. PROGRAF [Suspect]
     Active Substance: TACROLIMUS
     Indication: TRANSPLANT
     Route: 048
  71. PROGRAF [Suspect]
     Active Substance: TACROLIMUS
     Route: 048
  72. PROGRAF [Suspect]
     Active Substance: TACROLIMUS
     Dosage: 2.5 MILLIGRAM DAILY;
     Route: 048
  73. PROGRAF [Suspect]
     Active Substance: TACROLIMUS
     Dosage: 4 MILLIGRAM DAILY;
     Route: 048
  74. PROGRAF [Suspect]
     Active Substance: TACROLIMUS
     Route: 048
  75. PROGRAF [Suspect]
     Active Substance: TACROLIMUS
     Route: 048
  76. SULFASALAZINE. [Suspect]
     Active Substance: SULFASALAZINE
     Route: 042
  77. MYCOPHENOLATE MOFETIL. [Suspect]
     Active Substance: MYCOPHENOLATE MOFETIL
     Route: 065
  78. ANTI-THYMOCYTE GLOBULIN (RABBIT) NOS [Suspect]
     Active Substance: LAPINE T-LYMPHOCYTE IMMUNE GLOBULIN
     Indication: TRANSPLANT REJECTION
     Route: 065
  79. ANTI-THYMOCYTE GLOBULIN (RABBIT) NOS [Suspect]
     Active Substance: LAPINE T-LYMPHOCYTE IMMUNE GLOBULIN
     Route: 065
  80. DACLIZUMAB [Suspect]
     Active Substance: DACLIZUMAB
     Route: 042
  81. ENBREL [Suspect]
     Active Substance: ETANERCEPT
     Dosage: 25 MILLIGRAM DAILY;
     Route: 058
  82. PROGRAF [Suspect]
     Active Substance: TACROLIMUS
     Dosage: 4 MILLIGRAM DAILY;
     Route: 048
  83. PROGRAF [Suspect]
     Active Substance: TACROLIMUS
     Route: 048
  84. PROGRAF [Suspect]
     Active Substance: TACROLIMUS
     Route: 048
  85. TACROLIMUS. [Suspect]
     Active Substance: TACROLIMUS
     Route: 048

REACTIONS (16)
  - Condition aggravated [Not Recovered/Not Resolved]
  - Loss of personal independence in daily activities [Not Recovered/Not Resolved]
  - Liver function test abnormal [Not Recovered/Not Resolved]
  - Overdose [Not Recovered/Not Resolved]
  - Transplant rejection [Not Recovered/Not Resolved]
  - Acne [Not Recovered/Not Resolved]
  - Pain [Not Recovered/Not Resolved]
  - Product use issue [Not Recovered/Not Resolved]
  - Drug ineffective [Not Recovered/Not Resolved]
  - Incorrect route of product administration [Not Recovered/Not Resolved]
  - Pneumonia [Not Recovered/Not Resolved]
  - Rheumatoid arthritis [Not Recovered/Not Resolved]
  - Ovarian cyst [Not Recovered/Not Resolved]
  - Transplant dysfunction [Not Recovered/Not Resolved]
  - Alopecia [Not Recovered/Not Resolved]
  - Sleep disorder due to general medical condition, insomnia type [Not Recovered/Not Resolved]
